FAERS Safety Report 5510571-X (Version None)
Quarter: 2007Q4

REPORT INFORMATION
  Report Type: 
  Country: None (occurrence: None)
  Receive Date: 20071107
  Receipt Date: 20071023
  Transmission Date: 20080405
  Serious: Yes (Hospitalization)
  Sender: FDA-Public Use
  Company Number: POMP-11247

PATIENT
  Sex: Female
  Weight: 13.6 kg

DRUGS (13)
  1. MYOZYME [Suspect]
     Indication: GLYCOGEN STORAGE DISEASE TYPE II
     Dosage: 20 MG/KG Q2WKS IV
     Route: 042
     Dates: start: 20060601
  2. ALPHA-GLUCOSIDASE (HUMAN, RECOMBINANT, CHO CELLS, GENZYME). MFR: GENZY [Suspect]
     Indication: GLYCOGEN STORAGE DISEASE TYPE II
     Dosage: 20 MG/KG Q2WKS IV
     Route: 042
     Dates: start: 20050622, end: 20060601
  3. ALPHA-GLUCOSIDASE (HUMAN, RECOMBINANT, CHO CELLS, GENZYME). MFR: GENZY [Suspect]
     Indication: GLYCOGEN STORAGE DISEASE TYPE II
     Dosage: 20 MG/KG Q2WKS IV
     Route: 042
     Dates: start: 20040603, end: 20040607
  4. PREVACID. MFR: TAP PHARMACEUTICALS INC [Concomitant]
  5. POLY-VI-SOL [Concomitant]
  6. ENALAPRIL MALEATE [Concomitant]
  7. DIGOXIN [Concomitant]
  8. MIRALAX. MFR: BRAINTREE [Concomitant]
  9. LASIX [Concomitant]
  10. CULTURELLE [Concomitant]
  11. ALBUMIN (HUMAN) [Concomitant]
  12. SUCRALFATE [Concomitant]
  13. ROCEPHIN. MFR: HOFFMAN-LA ROCHE, INC. [Concomitant]

REACTIONS (21)
  - ACINETOBACTER INFECTION [None]
  - BACTERIA URINE IDENTIFIED [None]
  - BLOOD PH INCREASED [None]
  - BLOOD PRESSURE DIASTOLIC DECREASED [None]
  - DIARRHOEA [None]
  - ENTEROCOCCAL INFECTION [None]
  - ESCHERICHIA INFECTION [None]
  - HEART RATE INCREASED [None]
  - HYDRONEPHROSIS [None]
  - LEFT VENTRICULAR HYPERTROPHY [None]
  - PALLOR [None]
  - PERIPHERAL COLDNESS [None]
  - PSEUDOMONAS INFECTION [None]
  - RESIDUAL URINE [None]
  - RESPIRATORY DISTRESS [None]
  - RESPIRATORY RATE INCREASED [None]
  - SECRETION DISCHARGE [None]
  - SEPSIS [None]
  - STREPTOCOCCAL INFECTION [None]
  - SUPRAVENTRICULAR TACHYCARDIA [None]
  - URINARY TRACT INFECTION [None]
